FAERS Safety Report 19391935 (Version 3)
Quarter: 2021Q3

REPORT INFORMATION
  Report Type: Report from Study
  Country: US (occurrence: US)
  Receive Date: 20210608
  Receipt Date: 20210707
  Transmission Date: 20211014
  Serious: Yes (Other)
  Sender: FDA-Public Use
  Company Number: NVSC2021US122180

PATIENT
  Age: 63 Year
  Sex: Male

DRUGS (1)
  1. COSENTYX [Suspect]
     Active Substance: SECUKINUMAB
     Indication: PSORIASIS
     Dosage: 300 MG, QMO
     Route: 058

REACTIONS (3)
  - Pruritus [Unknown]
  - Skin cancer [Recovered/Resolved]
  - Malignant melanoma [Unknown]

NARRATIVE: CASE EVENT DATE: 20210422
